FAERS Safety Report 5887159-4 (Version None)
Quarter: 2008Q3

REPORT INFORMATION
  Report Type: 
  Country: None (occurrence: None)
  Receive Date: 20080917
  Receipt Date: 20080911
  Transmission Date: 20090109
  Serious: Yes (Hospitalization, Other)
  Sender: FDA-Public Use
  Company Number: US-MERCK-0705USA02159

PATIENT
  Age: 60 Year
  Sex: Female

DRUGS (20)
  1. FOSAMAX [Suspect]
     Indication: OSTEOPOROSIS
     Route: 048
     Dates: start: 20030801, end: 20060901
  2. PLAVIX [Concomitant]
     Route: 065
  3. COUMADIN [Concomitant]
     Route: 065
  4. CLARINEX [Concomitant]
     Route: 065
  5. CYMBALTA [Concomitant]
     Route: 065
  6. SINGULAIR [Concomitant]
     Route: 065
  7. ALAVERT [Concomitant]
     Route: 065
  8. ADEHL [Concomitant]
     Route: 065
  9. ZEOTIN [Concomitant]
     Route: 065
  10. DOXITIN [Concomitant]
     Route: 065
  11. FOLIC ACID [Concomitant]
     Route: 065
  12. PRILOSEC [Concomitant]
     Route: 065
  13. DIAZEPAN [Concomitant]
     Route: 065
  14. SOTYL [Concomitant]
     Route: 065
  15. CYANOCOBALAMIN [Concomitant]
     Route: 065
  16. MIGRAZONE [Concomitant]
     Route: 065
  17. ULTRAM [Concomitant]
     Route: 065
  18. NITROGLYCERIN [Concomitant]
     Route: 065
  19. TIMOLOL [Concomitant]
     Route: 065
  20. FOSAMAX PLUS D [Suspect]
     Indication: OSTEOPOROSIS
     Route: 048
     Dates: start: 20030801, end: 20060901

REACTIONS (13)
  - ANGINA PECTORIS [None]
  - ANGIOPATHY [None]
  - ANXIETY [None]
  - ARTHROPATHY [None]
  - CHEILITIS [None]
  - DENTAL CARIES [None]
  - DEPRESSION [None]
  - DRY MOUTH [None]
  - INTESTINAL OBSTRUCTION [None]
  - MOUTH ULCERATION [None]
  - ORAL CANDIDIASIS [None]
  - OSTEONECROSIS [None]
  - TOOTH FRACTURE [None]
